FAERS Safety Report 5893501-0 (Version None)
Quarter: 2008Q3

REPORT INFORMATION
  Report Type: 
  Country: None (occurrence: None)
  Receive Date: 20080923
  Receipt Date: 20080917
  Transmission Date: 20090109
  Serious: Yes (Hospitalization, Disabling)
  Sender: FDA-Public Use
  Company Number: JP-EISAI MEDICAL RESEARCH-ZONI001477

PATIENT
  Sex: Female

DRUGS (6)
  1. EXCEGRAN [Suspect]
     Indication: TRIGEMINAL NEURALGIA
     Route: 048
     Dates: start: 20020101, end: 20030810
  2. EXCEGRAN [Suspect]
     Route: 048
     Dates: start: 20030806, end: 20030807
  3. TEGRETOL [Suspect]
     Indication: TRIGEMINAL NEURALGIA
     Route: 048
     Dates: start: 20020101, end: 20030810
  4. MINOCYCLINE HCL [Suspect]
     Indication: UPPER RESPIRATORY TRACT INFLAMMATION
     Dosage: UNKNOWN
     Route: 065
     Dates: start: 20030806, end: 20030810
  5. HIRNAMIN [Concomitant]
  6. SERENACE [Concomitant]

REACTIONS (2)
  - DRUG RASH WITH EOSINOPHILIA AND SYSTEMIC SYMPTOMS [None]
  - PEMPHIGOID [None]
